FAERS Safety Report 9821479 (Version 2)
Quarter: 2014Q1

REPORT INFORMATION
  Report Type: Spontaneous
  Country: US (occurrence: US)
  Receive Date: 20140116
  Receipt Date: 20140116
  Transmission Date: 20141002
  Serious: Yes (Hospitalization)
  Sender: FDA-Public Use
  Company Number: US-GILEAD-2011-0035478

PATIENT
  Age: 83 Year
  Sex: Female

DRUGS (17)
  1. LETAIRIS [Suspect]
     Indication: PULMONARY HYPERTENSION
     Route: 048
     Dates: start: 20101230
  2. LETAIRIS [Suspect]
     Indication: LUNG DISORDER
  3. LETAIRIS [Suspect]
     Indication: RESPIRATORY FAILURE
  4. PLAVIX [Concomitant]
     Dates: start: 20101108
  5. CARVEDILOL [Concomitant]
     Dates: start: 20101222
  6. DIGOXIN [Concomitant]
     Dates: start: 20101222
  7. MIDODRINE [Concomitant]
     Dates: start: 20101207, end: 20110118
  8. CRESTOR [Concomitant]
     Dates: start: 20101025, end: 20110118
  9. BUMETANIDE [Concomitant]
     Dates: start: 20101105, end: 20110118
  10. ALBUTEROL [Concomitant]
     Dates: start: 20100913
  11. IPRATROPIUM [Concomitant]
     Dates: start: 20101222
  12. METFORMIN [Concomitant]
     Dates: start: 20101108
  13. PROTONIX [Concomitant]
     Dates: start: 20101222
  14. NEURONTIN [Concomitant]
     Dates: start: 20101222
  15. LEXAPRO [Concomitant]
     Dates: start: 20101108
  16. LUNESTA [Concomitant]
     Dates: start: 20100913
  17. KCL [Concomitant]
     Dates: start: 20100719

REACTIONS (1)
  - Dyspnoea [Unknown]
